FAERS Safety Report 7048186-7 (Version None)
Quarter: 2010Q4

REPORT INFORMATION
  Report Type: 
  Country: None (occurrence: None)
  Receive Date: 20101014
  Receipt Date: 20101014
  Transmission Date: 20110411
  Serious: Yes (Other)
  Sender: FDA-Public Use
  Company Number: None

PATIENT
  Age: 7 Year
  Sex: Male
  Weight: 27.2158 kg

DRUGS (3)
  1. SINGULAIR [Suspect]
     Indication: BRONCHITIS
     Dosage: 5 MG QHS PO
     Route: 048
     Dates: start: 20100601, end: 20101013
  2. SINGULAIR [Suspect]
     Indication: MULTIPLE ALLERGIES
     Dosage: 5 MG QHS PO
     Route: 048
     Dates: start: 20100601, end: 20101013
  3. SINGULAIR [Suspect]
     Indication: WHEEZING
     Dosage: 5 MG QHS PO
     Route: 048
     Dates: start: 20100601, end: 20101013

REACTIONS (8)
  - CRYING [None]
  - DISORIENTATION [None]
  - DISTURBANCE IN ATTENTION [None]
  - EDUCATIONAL PROBLEM [None]
  - ENURESIS [None]
  - PSYCHOMOTOR HYPERACTIVITY [None]
  - SLEEP TERROR [None]
  - URTICARIA [None]
